FAERS Safety Report 13765000 (Version 1)
Quarter: 2017Q3

REPORT INFORMATION
  Report Type: Spontaneous
  Country: US (occurrence: US)
  Receive Date: 20170718
  Receipt Date: 20170718
  Transmission Date: 20171127
  Serious: No
  Sender: FDA-Public Use
  Company Number: US-NOVOPROD-543286

PATIENT
  Age: 54 Year
  Sex: Male

DRUGS (1)
  1. TRESIBA [Suspect]
     Active Substance: INSULIN DEGLUDEC
     Indication: TYPE 2 DIABETES MELLITUS
     Dosage: 22 UNITS AT NIGHT
     Route: 058

REACTIONS (8)
  - Incorrect dose administered by device [Unknown]
  - Diabetes mellitus inadequate control [Recovering/Resolving]
  - Product quality issue [Unknown]
  - Glycosylated haemoglobin increased [Not Recovered/Not Resolved]
  - Product quality issue [Recovered/Resolved]
  - Device leakage [Unknown]
  - Blood glucose increased [Recovered/Resolved]
  - Device failure [Unknown]

NARRATIVE: CASE EVENT DATE: 201702
